FAERS Safety Report 25540332 (Version 1)
Quarter: 2025Q3

REPORT INFORMATION
  Report Type: Spontaneous
  Country: EU (occurrence: EU)
  Receive Date: 20250710
  Receipt Date: 20250710
  Transmission Date: 20251021
  Serious: Yes (Other)
  Sender: TEVA
  Company Number: EU-TEVA-VS-3337248

PATIENT
  Age: 9 Year
  Sex: Female

DRUGS (1)
  1. AMOXICILLIN\CLAVULANIC ACID [Suspect]
     Active Substance: AMOXICILLIN\CLAVULANIC ACID
     Indication: Product used for unknown indication
     Route: 065

REACTIONS (6)
  - Idiopathic intracranial hypertension [Unknown]
  - Product taste abnormal [Unknown]
  - Product dose omission issue [Unknown]
  - Product colour issue [Unknown]
  - Product odour abnormal [Unknown]
  - Adverse event [Unknown]
